FAERS Safety Report 6403539-2 (Version None)
Quarter: 2009Q4

REPORT INFORMATION
  Report Type: 
  Country: None (occurrence: None)
  Receive Date: 20091013
  Receipt Date: 20091005
  Transmission Date: 20100525
  Serious: Yes (Hospitalization)
  Sender: FDA-Public Use
  Company Number: AMI0014880

PATIENT
  Age: 77 Year
  Sex: Female

DRUGS (14)
  1. TIMOLOL MALEATE [Suspect]
     Indication: ANGLE CLOSURE GLAUCOMA
     Dosage: 046
     Dates: start: 20090711, end: 20090713
  2. ACETAZOLAMIDE [Suspect]
     Indication: ANGLE CLOSURE GLAUCOMA
     Dates: start: 20090711, end: 20090713
  3. DEXAMETHASONE/TOBRAMYCIN [Concomitant]
  4. CEFOTAXIM SODIUM [Concomitant]
  5. LEVOFLOXACIN [Concomitant]
  6. FLUTICASONE PROPIONATE + SALMETEROL XINAFOATE [Concomitant]
  7. MONTELUKAST SODIUM [Concomitant]
  8. ALBUTEROL SULFATE AUTOHALER [Concomitant]
  9. IRBESARTAN [Concomitant]
  10. DIGOXIN [Concomitant]
  11. RABEPRAZOLE SODIUM [Concomitant]
  12. NICARDIPIME HCL [Concomitant]
  13. FUROSEMIDE [Concomitant]
  14. PILOCARPIN [Concomitant]

REACTIONS (5)
  - ACUTE RESPIRATORY FAILURE [None]
  - COUGH [None]
  - METABOLIC ACIDOSIS [None]
  - RESPIRATORY ACIDOSIS [None]
  - SOMNOLENCE [None]
